FAERS Safety Report 7568860-3 (Version None)
Quarter: 2011Q2

REPORT INFORMATION
  Report Type: 
  Country: None (occurrence: None)
  Receive Date: 20110623
  Receipt Date: 20110617
  Transmission Date: 20111010
  Serious: Yes (Other)
  Sender: FDA-Public Use
  Company Number: IT-TEVA-287357ISR

PATIENT
  Sex: Female

DRUGS (3)
  1. OXALIPLATIN [Suspect]
     Indication: COLON CANCER
     Dosage: 144.5 MILLIGRAM;
     Route: 042
     Dates: start: 20101016, end: 20101229
  2. FLUOROURACIL [Suspect]
     Indication: COLON CANCER
     Route: 042
     Dates: start: 20101016, end: 20101229
  3. AVASTIN [Suspect]
     Indication: COLON CANCER
     Dosage: 320 MILLIGRAM;
     Route: 042
     Dates: start: 20101103, end: 20101229

REACTIONS (1)
  - TRANSAMINASES INCREASED [None]
